FAERS Safety Report 18246065 (Version 1)
Quarter: 2020Q3

REPORT INFORMATION
  Report Type: Spontaneous
  Country: DK (occurrence: DK)
  Receive Date: 20200909
  Receipt Date: 20200909
  Transmission Date: 20201103
  Serious: Yes (Other)
  Sender: FDA-Public Use
  Company Number: NVSC2020DK242172

PATIENT
  Sex: Female

DRUGS (2)
  1. CORODIL [ENALAPRIL] [Suspect]
     Active Substance: ENALAPRIL
     Indication: PRODUCT USED FOR UNKNOWN INDICATION
     Dosage: UNK
     Route: 065
  2. ENALAPRIL MALEATE. [Suspect]
     Active Substance: ENALAPRIL MALEATE
     Indication: PRODUCT USED FOR UNKNOWN INDICATION
     Dosage: UNK
     Route: 065
     Dates: start: 2004

REACTIONS (4)
  - Product supply issue [Unknown]
  - Pulmonary thrombosis [Unknown]
  - Cerebral thrombosis [Unknown]
  - Adverse reaction [Unknown]

NARRATIVE: CASE EVENT DATE: 202007
